FAERS Safety Report 25376843 (Version 1)
Quarter: 2025Q2

REPORT INFORMATION
  Report Type: Spontaneous
  Country: CR (occurrence: CR)
  Receive Date: 20250530
  Receipt Date: 20250530
  Transmission Date: 20250716
  Serious: Yes (Hospitalization, Other)
  Sender: NOVO NORDISK
  Company Number: CR-NOVOPROD-1416743

PATIENT
  Age: 43 Year
  Sex: Female
  Weight: 68.5 kg

DRUGS (5)
  1. SAXENDA [Suspect]
     Active Substance: LIRAGLUTIDE
     Indication: Product used for unknown indication
     Dosage: 1.8 MG, QD
     Dates: start: 20250219, end: 20250419
  2. WELLBUTRIN [Concomitant]
     Active Substance: BUPROPION HYDROCHLORIDE
     Dosage: 300 MG, QD
     Dates: start: 2024
  3. FLUOXETINE [Concomitant]
     Active Substance: FLUOXETINE HYDROCHLORIDE
     Dosage: 20 MG, QD
     Dates: start: 2017
  4. DESOGESTREL [Concomitant]
     Active Substance: DESOGESTREL
     Dosage: 0.075 MG, QD
     Dates: start: 2008
  5. AQUAVIT-E [Concomitant]

REACTIONS (6)
  - Oedematous pancreatitis [Unknown]
  - Colitis [Recovered/Resolved]
  - Hepatic steatosis [Unknown]
  - Cholelithiasis [Unknown]
  - Cholecystitis [Unknown]
  - Renal cyst [Unknown]

NARRATIVE: CASE EVENT DATE: 20250312
